FAERS Safety Report 4439788-2 (Version None)
Quarter: 2004Q3

REPORT INFORMATION
  Report Type: 
  Country: None (occurrence: None)
  Receive Date: 20040831
  Receipt Date: 20040818
  Transmission Date: 20050211
  Serious: Yes (Death, Other)
  Sender: FDA-Public Use
  Company Number: USA-2004-0016479

PATIENT
  Age: 57 Year
  Sex: Female

DRUGS (1)
  1. OXYCONTIN [Suspect]
     Indication: PAIN

REACTIONS (8)
  - ANAEMIA [None]
  - BRADYCARDIA [None]
  - CARDIOMYOPATHY [None]
  - DISEASE PROGRESSION [None]
  - LETHARGY [None]
  - OVERDOSE [None]
  - RENAL FAILURE [None]
  - THERAPEUTIC AGENT TOXICITY [None]
